FAERS Safety Report 5553615-1 (Version None)
Quarter: 2007Q4

REPORT INFORMATION
  Report Type: 
  Country: None (occurrence: None)
  Receive Date: 20071213
  Receipt Date: 20071205
  Transmission Date: 20080405
  Serious: Yes (Other)
  Sender: FDA-Public Use
  Company Number: PHBS2007ZA20439

PATIENT
  Age: 16 Year
  Sex: Male

DRUGS (2)
  1. VOLTAREN [Suspect]
     Indication: PAIN
     Dosage: UNK, UNK
     Route: 030
     Dates: start: 20071130
  2. CELESTONE TAB [Suspect]
     Dosage: UNK, UNK
     Route: 030
     Dates: start: 20071130

REACTIONS (2)
  - MUSCLE ENZYME INCREASED [None]
  - RHABDOMYOLYSIS [None]
